FAERS Safety Report 7610430-2 (Version None)
Quarter: 2011Q3

REPORT INFORMATION
  Report Type: 
  Country: None (occurrence: None)
  Receive Date: 20110715
  Receipt Date: 20110712
  Transmission Date: 20111222
  Serious: No
  Sender: FDA-Public Use
  Company Number: US-PFIZER INC-2011136556

PATIENT
  Sex: Female

DRUGS (4)
  1. RELPAX [Suspect]
     Indication: MIGRAINE
     Dosage: 40 MG, UNK
     Route: 048
     Dates: start: 20060101
  2. ZYRTEC [Concomitant]
     Indication: RHINITIS ALLERGIC
     Dosage: 10 MG, UNK
     Dates: start: 20060101
  3. LEXAPRO [Concomitant]
     Indication: DEPRESSION
     Dosage: 15 MG, UNK
     Dates: start: 20050101
  4. ORTHO CYCLEN-28 [Concomitant]
     Indication: DYSMENORRHOEA
     Dosage: UNK
     Dates: start: 20020101

REACTIONS (4)
  - CONFUSIONAL STATE [None]
  - FATIGUE [None]
  - DISORIENTATION [None]
  - DIZZINESS [None]
